FAERS Safety Report 10278893 (Version 4)
Quarter: 2015Q2

REPORT INFORMATION
  Report Type: Spontaneous
  Country: DK (occurrence: DK)
  Receive Date: 20140706
  Receipt Date: 20150605
  Transmission Date: 20150821
  Serious: Yes (Death, Hospitalization)
  Sender: FDA-Public Use
  Company Number: PHHY2014DK082522

PATIENT
  Age: 80 Year
  Sex: Female

DRUGS (12)
  1. LOSARSTAD [Concomitant]
     Indication: HYPERTENSION
     Dosage: 50 MG, BID
     Route: 048
     Dates: start: 20130212, end: 20140609
  2. AMLODIPIN [Concomitant]
     Active Substance: AMLODIPINE BESYLATE
     Indication: HYPERTENSION
     Dosage: STYRKE: 10 MG.
     Route: 048
     Dates: start: 20130212, end: 20140603
  3. LOSARTANKALIUM [Concomitant]
     Active Substance: LOSARTAN
     Indication: PRODUCT USED FOR UNKNOWN INDICATION
     Dosage: UNK UNK, BID
     Route: 065
  4. KODEIN [Concomitant]
     Active Substance: CODEINE PHOSPHATE
     Indication: PAIN
     Dosage: 75 MG, QD
     Route: 048
     Dates: start: 20140518, end: 20140609
  5. LAXOBERAL [Concomitant]
     Active Substance: SODIUM PICOSULFATE
     Indication: CONSTIPATION
     Dosage: 5 MG, BID
     Route: 048
     Dates: start: 20140609, end: 20140611
  6. SIMVASTATIN. [Concomitant]
     Active Substance: SIMVASTATIN
     Indication: CARDIOVASCULAR EVENT PROPHYLAXIS
     Dosage: 40 MG, QD
     Route: 048
     Dates: start: 20130212, end: 20140617
  7. IBUPROFEN. [Concomitant]
     Active Substance: IBUPROFEN
     Indication: PAIN
     Dosage: 600 MG, TID
     Route: 048
     Dates: start: 20130202
  8. ACLASTA [Suspect]
     Active Substance: ZOLEDRONIC ACID
     Indication: METASTASES TO BONE
     Dosage: 5 MG, UNK
     Route: 042
     Dates: start: 20140430
  9. FURIX [Concomitant]
     Active Substance: FUROSEMIDE
     Indication: HYPERTENSION
     Dosage: 40 MG, UNK
     Route: 048
     Dates: start: 20140518, end: 20140609
  10. HJERDYL [Concomitant]
     Active Substance: ASPIRIN
     Indication: ANTICOAGULANT THERAPY
     Dosage: 75 MG, QD
     Route: 048
     Dates: start: 20130212
  11. ACLASTA [Suspect]
     Active Substance: ZOLEDRONIC ACID
     Indication: OSTEOPOROSIS
  12. SOTALOL MYLAN [Concomitant]
     Indication: ARRHYTHMIA
     Dosage: 40 MG, BID
     Route: 048
     Dates: start: 20130212, end: 20140609

REACTIONS (13)
  - Hyperhidrosis [Unknown]
  - Pleural effusion [Unknown]
  - Acute kidney injury [Fatal]
  - Haemodialysis [Unknown]
  - Pulmonary oedema [Unknown]
  - Altered state of consciousness [Unknown]
  - Acute respiratory failure [Unknown]
  - Ventricular fibrillation [Not Recovered/Not Resolved]
  - Atelectasis [Unknown]
  - Nausea [Recovered/Resolved with Sequelae]
  - Ventricular tachycardia [Fatal]
  - Arrhythmia [Not Recovered/Not Resolved]
  - Vomiting [Recovered/Resolved with Sequelae]

NARRATIVE: CASE EVENT DATE: 201405
